FAERS Safety Report 15363161 (Version 5)
Quarter: 2020Q2

REPORT INFORMATION
  Report Type: Report from Study
  Country: US (occurrence: US)
  Receive Date: 20180907
  Receipt Date: 20200408
  Transmission Date: 20200713
  Serious: Yes (Hospitalization)
  Sender: FDA-Public Use
  Company Number: PHHO2018US010024

PATIENT
  Age: 16 Year
  Sex: Female

DRUGS (15)
  1. METHOTREXATE. [Suspect]
     Active Substance: METHOTREXATE
     Indication: ACUTE LYMPHOCYTIC LEUKAEMIA
     Dosage: 27.5 MG, QW
     Route: 048
     Dates: start: 20180319, end: 20180826
  2. INC424A [Suspect]
     Active Substance: RUXOLITINIB
     Indication: ACUTE LYMPHOCYTIC LEUKAEMIA
     Dosage: 90 MG, BID
     Route: 048
     Dates: start: 20170619
  3. INC424A [Suspect]
     Active Substance: RUXOLITINIB
     Dosage: 90 MG, BID
     Route: 048
     Dates: start: 20181015
  4. MERCAPTOPURIN [Suspect]
     Active Substance: MERCAPTOPURINE
     Indication: ACUTE LYMPHOCYTIC LEUKAEMIA
     Dosage: 50 MG, QD
     Route: 048
     Dates: start: 20180312, end: 20180826
  5. ROCEPHINE [Concomitant]
     Active Substance: CEFTRIAXONE SODIUM
     Indication: INFECTION
  6. METHOTREXATE. [Suspect]
     Active Substance: METHOTREXATE
     Dosage: 27.5 MG, QW
     Route: 048
     Dates: start: 20181015
  7. VANCOMYCIN [Concomitant]
     Active Substance: VANCOMYCIN
     Indication: PRODUCT USED FOR UNKNOWN INDICATION
     Dosage: 750 MG
     Route: 042
     Dates: start: 20180826, end: 20180830
  8. LINEZOLIDE [Concomitant]
     Active Substance: LINEZOLID
     Indication: INFECTION
  9. PREDNISONE. [Concomitant]
     Active Substance: PREDNISONE
     Indication: ACUTE LYMPHOCYTIC LEUKAEMIA
     Dosage: 38 MG, BID
     Route: 048
     Dates: start: 20170305
  10. TORA DOL [Concomitant]
     Active Substance: KETOROLAC TROMETHAMINE
     Indication: PRODUCT USED FOR UNKNOWN INDICATION
     Dosage: 15 MG, ONCE/SINGLE
     Route: 065
  11. MERCAPTOPURIN [Suspect]
     Active Substance: MERCAPTOPURINE
     Dosage: 50 MG, QD
     Route: 048
     Dates: start: 20180917, end: 20181001
  12. ROCEPHINE [Concomitant]
     Active Substance: CEFTRIAXONE SODIUM
     Indication: PYREXIA
     Dosage: 1 G, BID
     Route: 065
     Dates: start: 20180912
  13. VINCRISTINE [Concomitant]
     Active Substance: VINCRISTINE
     Indication: ACUTE LYMPHOCYTIC LEUKAEMIA
     Dosage: 2 MG, UNK
     Route: 042
     Dates: start: 20180917
  14. INC424A [Suspect]
     Active Substance: RUXOLITINIB
     Dosage: 95 MG, BID
     Route: 048
     Dates: start: 20180709, end: 20180826
  15. LINEZOLIDE [Concomitant]
     Active Substance: LINEZOLID
     Indication: PYREXIA
     Dosage: 600 MG, BID
     Route: 042
     Dates: start: 20180902

REACTIONS (5)
  - Acute kidney injury [Recovered/Resolved]
  - Cellulitis [Recovered/Resolved]
  - Pyrexia [Recovered/Resolved]
  - Erythema nodosum [Recovered/Resolved]
  - Cellulitis [Recovered/Resolved]

NARRATIVE: CASE EVENT DATE: 20180824
